FAERS Safety Report 6392419-7 (Version None)
Quarter: 2009Q4

REPORT INFORMATION
  Report Type: 
  Country: None (occurrence: None)
  Receive Date: 20091005
  Receipt Date: 20090922
  Transmission Date: 20100525
  Serious: Yes (Hospitalization)
  Sender: FDA-Public Use
  Company Number: 2008-03180

PATIENT
  Age: 66 Year
  Sex: Male
  Weight: 84 kg

DRUGS (15)
  1. VELCADE [Suspect]
     Indication: MULTIPLE MYELOMA
     Dosage: INTRAVENOUS
     Route: 042
     Dates: start: 20080606
  2. DEXAMETHASONE TAB [Suspect]
     Indication: MULTIPLE MYELOMA
     Dosage: ORAL
     Route: 048
     Dates: start: 20080606
  3. METOPROLOL (METOPROLOL) [Concomitant]
  4. ESOMEPRAZOLE MAGNESIUM [Concomitant]
  5. LIPITOR [Concomitant]
  6. FOLIC ACID [Concomitant]
  7. ONDANSETRON [Concomitant]
  8. AMIODARONE HCL [Concomitant]
  9. VANCOMYCIN [Concomitant]
  10. AMPICILLIN [Concomitant]
  11. COLOXYL WITH SENNA (SENNOSIDE A+B, DOCUSATE SODIUM) [Concomitant]
  12. MAGMIN (MAGNESIUM ASPARTATE) [Concomitant]
  13. PARACETAMOL (PARACETAMOL) [Concomitant]
  14. LACTULOSE [Concomitant]
  15. AMOXICILLIN [Concomitant]

REACTIONS (11)
  - ATRIAL FIBRILLATION [None]
  - COAGULOPATHY [None]
  - EPISTAXIS [None]
  - FEBRILE NEUTROPENIA [None]
  - HAEMORRHOIDS [None]
  - ILEUS PARALYTIC [None]
  - INFECTION [None]
  - MALIGNANT NEOPLASM PROGRESSION [None]
  - MULTIPLE MYELOMA [None]
  - PANCYTOPENIA [None]
  - VITAMIN K DEFICIENCY [None]
